FAERS Safety Report 11826315 (Version 1)
Quarter: 2015Q4

REPORT INFORMATION
  Report Type: Spontaneous
  Country: US (occurrence: None)
  Receive Date: 20151210
  Receipt Date: 20151210
  Transmission Date: 20160305
  Serious: Yes (Other)
  Sender: FDA-Public Use
  Company Number: None

PATIENT
  Age: 33 Year
  Sex: Female
  Weight: 150 kg

DRUGS (1)
  1. PLAN B ONE-STEP [Suspect]
     Active Substance: LEVONORGESTREL
     Indication: CONTRACEPTION
     Dates: start: 20151201, end: 20151201

REACTIONS (6)
  - Back pain [None]
  - Hot flush [None]
  - Vaginal discharge [None]
  - Pyrexia [None]
  - Vaginal haemorrhage [None]
  - Chills [None]

NARRATIVE: CASE EVENT DATE: 20151208
